FAERS Safety Report 5021441-8 (Version None)
Quarter: 2006Q2

REPORT INFORMATION
  Report Type: 
  Country: None (occurrence: None)
  Receive Date: 20060605
  Receipt Date: 20060523
  Transmission Date: 20061013
  Serious: Yes (Death, Hospitalization)
  Sender: FDA-Public Use
  Company Number: 2005123885

PATIENT
  Age: 49 Year
  Sex: Male
  Weight: 99.7913 kg

DRUGS (1)
  1. BEXTRA [Suspect]
     Indication: HIP ARTHROPLASTY
     Dosage: 20 MG (20 MG, 1 IN 1 D)
     Dates: start: 20040701

REACTIONS (1)
  - MYOCARDIAL INFARCTION [None]
